FAERS Safety Report 4311996-0 (Version None)
Quarter: 2004Q1

REPORT INFORMATION
  Report Type: 
  Country: None (occurrence: None)
  Receive Date: 20040305
  Receipt Date: 20031028
  Transmission Date: 20041129
  Serious: Yes (Other)
  Sender: FDA-Public Use
  Company Number: US-GLAXOSMITHKLINE-A0431939A

PATIENT
  Age: 70 Year
  Sex: Female
  Weight: 62.3 kg

DRUGS (2)
  1. REQUIP [Suspect]
     Indication: PARKINSON'S DISEASE
     Dosage: 8MG PER DAY
     Route: 048
     Dates: start: 20030729, end: 20031029
  2. SINEMET [Concomitant]
     Route: 048

REACTIONS (3)
  - FLUID RETENTION [None]
  - HALLUCINATION [None]
  - OEDEMA PERIPHERAL [None]
